FAERS Safety Report 5411262-6 (Version None)
Quarter: 2007Q3

REPORT INFORMATION
  Report Type: 
  Country: None (occurrence: None)
  Receive Date: 20070810
  Receipt Date: 20070801
  Transmission Date: 20080115
  Serious: Yes (Hospitalization, Disabling, Other)
  Sender: FDA-Public Use
  Company Number: US-ROCHE-391972

PATIENT
  Age: 26 Year
  Sex: Female
  Weight: 59 kg

DRUGS (22)
  1. ACCUTANE [Suspect]
     Route: 048
     Dates: start: 19940914, end: 19951201
  2. ACCUTANE [Suspect]
     Dosage: STOP DATE REPORTED AS EARLY 1996.
     Route: 048
     Dates: start: 19951201, end: 19960101
  3. ACCUTANE [Suspect]
     Dosage: STOP DATE REPORTED AS EARLY 1997.
     Route: 048
     Dates: start: 19961101, end: 19970101
  4. ACCUTANE [Suspect]
     Dosage: STOP DATE REPORTED AS SUMMER 1998.
     Route: 048
     Dates: start: 19980501, end: 19980701
  5. ACCUTANE [Suspect]
     Dosage: STOP DATE REPORTED AS SUMMER 1999.
     Route: 048
     Dates: start: 19990301, end: 19990701
  6. ACCUTANE [Suspect]
     Dosage: STOP DATE REPORTED AS LATE 1999 OR EARLY 2000.
     Route: 048
     Dates: start: 19991001, end: 19991201
  7. ACCUTANE [Suspect]
     Route: 048
     Dates: start: 20000501
  8. ACCUTANE [Suspect]
     Route: 048
     Dates: start: 20001101
  9. ACCUTANE [Suspect]
     Route: 048
     Dates: start: 20010219, end: 20010401
  10. COMPAZINE [Concomitant]
  11. ORTHO-NOVUM [Concomitant]
  12. ORTHO TRI-CYCLEN [Concomitant]
  13. ADALAT [Concomitant]
  14. ZYRTEC [Concomitant]
  15. BENADRYL [Concomitant]
  16. NASACORT [Concomitant]
  17. HERBAL EXTRACTS NOS [Concomitant]
     Dosage: DRUGS REPORTED AS UNSPECIFIED HERBAL MEDICINES.
  18. LAC-HYDRIN [Concomitant]
     Dosage: DRUG REPORTED AS LAC-HYDRIN 12 % CR.
     Dates: start: 20000523
  19. CLEOCIN T [Concomitant]
     Dates: start: 20000523
  20. HYDROQUINONE [Concomitant]
     Dosage: DRUG REPORTED AS HYDROQUINONE 4% CR.
     Dates: start: 20001127
  21. EMBELINE E [Concomitant]
     Dosage: DRUG REPORTED AS EMBELINE E 0.05% CR.
     Dates: start: 20001127
  22. PENLAC [Concomitant]
     Route: 061
     Dates: start: 20001127

REACTIONS (20)
  - ABDOMINAL PAIN [None]
  - ANAEMIA [None]
  - COLITIS [None]
  - CONSTIPATION [None]
  - DEPRESSION [None]
  - DIABETES MELLITUS [None]
  - DRY SKIN [None]
  - FATIGUE [None]
  - GASTROENTERITIS [None]
  - GASTROINTESTINAL PAIN [None]
  - GASTROOESOPHAGEAL REFLUX DISEASE [None]
  - HEPATIC ENZYME INCREASED [None]
  - HEPATITIS [None]
  - HYPERTENSION [None]
  - HYPERTENSIVE CRISIS [None]
  - HYPERTRIGLYCERIDAEMIA [None]
  - INFLAMMATORY BOWEL DISEASE [None]
  - INSOMNIA [None]
  - IRRITABLE BOWEL SYNDROME [None]
  - PANCREATITIS [None]
